FAERS Safety Report 12770499 (Version 1)
Quarter: 2016Q3

REPORT INFORMATION
  Report Type: Spontaneous
  Country: JP (occurrence: JP)
  Receive Date: 20160922
  Receipt Date: 20160922
  Transmission Date: 20161109
  Serious: Yes (Death, Hospitalization)
  Sender: FDA-Public Use
  Company Number: PHJP2016JP026690

PATIENT
  Age: 81 Year
  Sex: Female

DRUGS (2)
  1. NEORAL [Suspect]
     Active Substance: CYCLOSPORINE
     Dosage: 150 MG, QD
     Route: 048
     Dates: start: 20160910, end: 20160912
  2. NEORAL [Suspect]
     Active Substance: CYCLOSPORINE
     Indication: PSORIASIS
     Dosage: 150 MG, QD
     Route: 048
     Dates: start: 201505

REACTIONS (4)
  - Interstitial lung disease [Fatal]
  - Oral administration complication [Unknown]
  - Sputum retention [Fatal]
  - Product use issue [Unknown]

NARRATIVE: CASE EVENT DATE: 20160907
